FAERS Safety Report 7911225-2 (Version None)
Quarter: 2011Q4

REPORT INFORMATION
  Report Type: 
  Country: None (occurrence: None)
  Receive Date: 20111114
  Receipt Date: 20111107
  Transmission Date: 20120403
  Serious: Yes (Hospitalization)
  Sender: FDA-Public Use
  Company Number: DE-JNJFOC-20111102522

PATIENT
  Age: 30 Year
  Sex: Male
  Weight: 111.4 kg

DRUGS (9)
  1. SEROQUEL XR [Suspect]
     Route: 048
     Dates: start: 20110806, end: 20110813
  2. SEROQUEL XR [Suspect]
     Route: 048
     Dates: start: 20100801, end: 20110719
  3. SEROQUEL XR [Suspect]
     Route: 048
     Dates: start: 20110720, end: 20110727
  4. SEROQUEL XR [Suspect]
     Route: 048
     Dates: start: 20110814, end: 20110821
  5. RISPERDAL CONSTA [Suspect]
     Indication: PRODUCT USED FOR UNKNOWN INDICATION
     Route: 030
     Dates: start: 20070101, end: 20110712
  6. SEROQUEL XR [Suspect]
     Route: 048
     Dates: start: 20110822
  7. SIMVASTATIN [Concomitant]
     Route: 048
     Dates: start: 20110725
  8. SEROQUEL XR [Suspect]
     Indication: PRODUCT USED FOR UNKNOWN INDICATION
     Route: 048
     Dates: start: 20110728, end: 20110805
  9. DIAZEPAM [Concomitant]
     Route: 048
     Dates: start: 20110719

REACTIONS (4)
  - LIVER FUNCTION TEST ABNORMAL [None]
  - HYPERLIPIDAEMIA [None]
  - WEIGHT INCREASED [None]
  - HYPERURICAEMIA [None]
